FAERS Safety Report 4296577-X (Version None)
Quarter: 2004Q1

REPORT INFORMATION
  Report Type: 
  Country: None (occurrence: None)
  Receive Date: 20040217
  Receipt Date: 20030425
  Transmission Date: 20041129
  Serious: Yes (Hospitalization, Other)
  Sender: FDA-Public Use
  Company Number: JP-GLAXOSMITHKLINE-B0299035A

PATIENT
  Age: 63 Year
  Sex: Female

DRUGS (5)
  1. PAROXETINE HCL [Suspect]
     Indication: DEPRESSION
     Route: 048
     Dates: start: 20030224
  2. ETHYL LOFLAZEPATE [Suspect]
     Dosage: 1MG PER DAY
     Route: 048
     Dates: start: 20030224, end: 20030317
  3. FLUNITRAZEPAM [Concomitant]
     Dosage: 1MG PER DAY
     Route: 048
     Dates: start: 20030317
  4. BROTIZOLAM [Concomitant]
     Dosage: .25MG PER DAY
     Route: 048
     Dates: start: 20030224
  5. TRIHEXYPHENIDYL HCL [Concomitant]
     Dosage: 4MG PER DAY
     Route: 048
     Dates: start: 20030325, end: 20030401

REACTIONS (4)
  - ESSENTIAL TREMOR [None]
  - HEPATIC FUNCTION ABNORMAL [None]
  - MALAISE [None]
  - TREATMENT NONCOMPLIANCE [None]
